FAERS Safety Report 15685310 (Version 3)
Quarter: 2020Q3

REPORT INFORMATION
  Report Type: Spontaneous
  Country: GB (occurrence: GB)
  Receive Date: 20181204
  Receipt Date: 20200730
  Transmission Date: 20201102
  Serious: Yes (Other)
  Sender: FDA-Public Use
  Company Number: PHHY2018GB172016

PATIENT
  Age: 34 Year
  Sex: Female
  Weight: 70 kg

DRUGS (5)
  1. DOXYCYCLINE. [Suspect]
     Active Substance: DOXYCYCLINE
     Indication: ACNE
     Dosage: 100 MG, QD
     Route: 065
     Dates: start: 20171221
  2. EPIDUO [Concomitant]
     Active Substance: ADAPALENE\BENZOYL PEROXIDE
     Indication: PRODUCT USED FOR UNKNOWN INDICATION
     Dosage: APPLY
     Route: 065
     Dates: start: 20180815
  3. DOXYCYCLINE. [Suspect]
     Active Substance: DOXYCYCLINE
     Dosage: 100 MG (3?4 DAYS ONLY USE)
     Route: 065
     Dates: start: 20181112
  4. MOMETASONE [Concomitant]
     Active Substance: MOMETASONE
     Indication: PRODUCT USED FOR UNKNOWN INDICATION
     Dosage: EACH NOSTRIL.
     Route: 045
     Dates: start: 20180815
  5. AZELAIC ACID. [Concomitant]
     Active Substance: AZELAIC ACID
     Indication: ACNE
     Dosage: APPLY
     Route: 065
     Dates: start: 20171221

REACTIONS (4)
  - Hallucination [Recovered/Resolved]
  - Depression [Recovered/Resolved]
  - Hallucinations, mixed [Not Recovered/Not Resolved]
  - Suicidal ideation [Recovered/Resolved]

NARRATIVE: CASE EVENT DATE: 20181112
